FAERS Safety Report 5941358-1 (Version None)
Quarter: 2008Q4

REPORT INFORMATION
  Report Type: 
  Country: None (occurrence: None)
  Receive Date: 20081103
  Receipt Date: 20081016
  Transmission Date: 20090506
  Serious: Yes (Hospitalization)
  Sender: FDA-Public Use
  Company Number: GB-DEXPHARM-20081222

PATIENT
  Age: 20 Year
  Sex: Male

DRUGS (4)
  1. OMEPRAZOLE [Suspect]
  2. ANTIBIOTICS [Concomitant]
  3. AZITHROMYCIN [Concomitant]
  4. STEROIDS [Concomitant]

REACTIONS (8)
  - BODY TEMPERATURE INCREASED [None]
  - CLOSTRIDIUM DIFFICILE TOXIN TEST POSITIVE [None]
  - CONDITION AGGRAVATED [None]
  - DEHYDRATION [None]
  - HYPOTENSION [None]
  - LUNG DISORDER [None]
  - PSEUDOMEMBRANOUS COLITIS [None]
  - TACHYCARDIA [None]
